FAERS Safety Report 12455123 (Version 7)
Quarter: 2016Q4

REPORT INFORMATION
  Report Type: Report from Study
  Country: BR (occurrence: BR)
  Receive Date: 20160610
  Receipt Date: 20161228
  Transmission Date: 20170207
  Serious: Yes (Life-Threatening, Hospitalization, Other)
  Sender: FDA-Public Use
  Company Number: PHHY2015BR150288

PATIENT
  Age: 61 Year
  Sex: Female
  Weight: 91 kg

DRUGS (18)
  1. INSULIN RAPID [Concomitant]
     Active Substance: INSULIN NOS
     Indication: DIABETES MELLITUS
     Dosage: TID, 2U IN THE MORNING, START 15 YEARS AGO
     Route: 058
  2. FUROSEMIDE. [Concomitant]
     Active Substance: FUROSEMIDE
     Indication: DYSPNOEA
  3. FUROSEMIDE. [Concomitant]
     Active Substance: FUROSEMIDE
     Indication: HYPERTENSION
  4. HYDRALAZINE [Concomitant]
     Active Substance: HYDRALAZINE HYDROCHLORIDE
     Indication: PRODUCT USED FOR UNKNOWN INDICATION
     Dosage: 2 DF,
     Route: 048
  5. ASA [Concomitant]
     Active Substance: ASPIRIN
     Indication: PRODUCT USED FOR UNKNOWN INDICATION
     Dosage: 1 DF, START 5 YEARS AGO
     Route: 048
  6. AMLODIPINE [Concomitant]
     Active Substance: AMLODIPINE BESYLATE
     Indication: PRODUCT USED FOR UNKNOWN INDICATION
     Dosage: UNK
     Route: 065
  7. INSULIN N [Concomitant]
     Active Substance: INSULIN HUMAN
     Indication: DIABETES MELLITUS
     Dosage: TID,(20U IN THE MORNING, 20U AT LUNCH AND 8U AT), START 15 YEARS AGO
     Route: 058
  8. INSULIN [Concomitant]
     Active Substance: INSULIN NOS
     Indication: BLOOD GLUCOSE INCREASED
     Dosage: 180 U, UNK
     Route: 065
  9. INSULIN [Concomitant]
     Active Substance: INSULIN NOS
     Dosage: DECREASED TOO MACH
     Route: 065
  10. LOSARTAN. [Concomitant]
     Active Substance: LOSARTAN
     Indication: HYPERTENSION
     Dosage: 2 DF, (START 5 YEARS)
     Route: 048
  11. CILOSTAZOL. [Concomitant]
     Active Substance: CILOSTAZOL
     Indication: HYPERTENSION
     Dosage: 2 DF, (START 5 YEARS)
     Route: 048
  12. FUROSEMIDE. [Concomitant]
     Active Substance: FUROSEMIDE
     Indication: DYSURIA
     Dosage: 1 DF, QD (TART 5 YEARS)
     Route: 048
  13. CILOSTAZOL. [Concomitant]
     Active Substance: CILOSTAZOL
     Dosage: 50 MG, 2 TABLETS A DAY ? ORAL ? START 5 YEARS AGO
     Route: 048
  14. CARVEDILOL. [Concomitant]
     Active Substance: CARVEDILOL
     Indication: HYPERTENSION
     Dosage: 2 DF, QD
     Route: 065
  15. INSULIN [Concomitant]
     Active Substance: INSULIN NOS
     Dosage: 40 U, UNK
     Route: 065
  16. METFORMIN [Concomitant]
     Active Substance: METFORMIN HYDROCHLORIDE
     Indication: DIABETES MELLITUS
     Dosage: 3 DF, QD (START 15 YEARS AGO)
     Route: 048
  17. SANDOSTATIN LAR DEPOT [Suspect]
     Active Substance: OCTREOTIDE ACETATE
     Indication: ACROMEGALY
     Dosage: 30 MG, QMO (1 APPLICATION EVERY 28 DAYS)
     Route: 030
     Dates: start: 20151023
  18. CABERGOLINA [Concomitant]
     Active Substance: CABERGOLINE
     Indication: ACROMEGALY
     Dosage: 1 DF, TWICE A WEEK
     Route: 048
     Dates: start: 20161001

REACTIONS (39)
  - Cardio-respiratory arrest [Unknown]
  - Gastrointestinal pain [Recovered/Resolved]
  - Anxiety [Recovering/Resolving]
  - Optic nerve disorder [Recovering/Resolving]
  - Limb injury [Unknown]
  - Hormone level abnormal [Unknown]
  - Hypertension [Recovering/Resolving]
  - Myocardial infarction [Recovered/Resolved]
  - Body height decreased [Unknown]
  - Blood glucose fluctuation [Unknown]
  - Wrong technique in product usage process [Unknown]
  - Daydreaming [Recovered/Resolved]
  - Peripheral swelling [Recovering/Resolving]
  - Tumour compression [Recovering/Resolving]
  - Balance disorder [Recovering/Resolving]
  - Drug ineffective [Unknown]
  - Asthenia [Unknown]
  - Heart rate decreased [Unknown]
  - Diabetes mellitus [Recovered/Resolved]
  - Dysstasia [Recovering/Resolving]
  - Sensory loss [Unknown]
  - Blood glucose decreased [Recovering/Resolving]
  - Hyperhidrosis [Unknown]
  - Alopecia [Unknown]
  - Malaise [Unknown]
  - Loss of consciousness [Unknown]
  - Limb injury [Recovered/Resolved]
  - Body height increased [Unknown]
  - Fall [Recovered/Resolved]
  - Pain in extremity [Recovered/Resolved]
  - Nervousness [Recovering/Resolving]
  - Unresponsive to stimuli [Unknown]
  - Foot deformity [Recovering/Resolving]
  - Therapeutic response unexpected [Unknown]
  - Headache [Unknown]
  - Swelling [Recovering/Resolving]
  - Blood insulin increased [Unknown]
  - Dry skin [Unknown]
  - Fear [Unknown]

NARRATIVE: CASE EVENT DATE: 20151026
